FAERS Safety Report 6552006-4 (Version None)
Quarter: 2010Q2

REPORT INFORMATION
  Report Type: 
  Country: None (occurrence: None)
  Receive Date: 20100120
  Receipt Date: 20100108
  Transmission Date: 20101027
  Serious: Yes (Death)
  Sender: FDA-Public Use
  Company Number: 230008M10USA

PATIENT
  Age: 55 Year
  Sex: Male

DRUGS (5)
  1. REBIF [Suspect]
     Indication: MULTIPLE SCLEROSIS
     Dosage: 44 MCG, 3 IN 1 WEEKS, SUBCUTANEOUS
     Route: 058
     Dates: start: 20080107, end: 20100103
  2. GABAPENTIN [Concomitant]
  3. BACLOFEN [Concomitant]
  4. FLOMAX (MORNIFLUMATE) [Concomitant]
  5. LEXAPRO [Concomitant]

REACTIONS (1)
  - MYOCARDIAL INFARCTION [None]
